FAERS Safety Report 4840561-1 (Version None)
Quarter: 2005Q4

REPORT INFORMATION
  Report Type: 
  Country: None (occurrence: None)
  Receive Date: 20051130
  Receipt Date: 20051017
  Transmission Date: 20060501
  Serious: No
  Sender: FDA-Public Use
  Company Number: US-BRISTOL-MYERS SQUIBB COMPANY-13147137

PATIENT
  Sex: Female

DRUGS (12)
  1. ERBITUX [Suspect]
     Indication: COLORECTAL CANCER
     Dates: start: 20050602
  2. AVASTIN [Concomitant]
  3. COUMADIN [Concomitant]
  4. PLAVIX [Concomitant]
  5. AMARYL [Concomitant]
  6. TOPROL-XL [Concomitant]
  7. DIOVAN [Concomitant]
  8. SYNTHROID [Concomitant]
  9. GLUCOPHAGE [Concomitant]
  10. ACTOS [Concomitant]
  11. LASIX [Concomitant]
  12. XELODA [Concomitant]

REACTIONS (1)
  - SCAB [None]
